FAERS Safety Report 6476587-4 (Version None)
Quarter: 2009Q4

REPORT INFORMATION
  Report Type: 
  Country: None (occurrence: None)
  Receive Date: 20091207
  Receipt Date: 20091201
  Transmission Date: 20100525
  Serious: Yes (Life-Threatening, Hospitalization, Other)
  Sender: FDA-Public Use
  Company Number: BE-CELGENEUS-013-C5013-09120129

PATIENT
  Sex: Female
  Weight: 77 kg

DRUGS (11)
  1. CC-5013 [Suspect]
     Indication: CHRONIC LYMPHOCYTIC LEUKAEMIA
     Route: 048
     Dates: start: 20091116, end: 20091127
  2. SINTROM [Suspect]
     Route: 065
     Dates: start: 19980305, end: 20091130
  3. LIPITOR [Concomitant]
     Indication: HYPERCHOLESTEROLAEMIA
     Route: 065
     Dates: start: 20020101, end: 20091130
  4. ALLOPURINOL [Concomitant]
     Indication: RENAL FAILURE
     Route: 065
     Dates: start: 20090426, end: 20091130
  5. CITALOPRAM HYDROBROMIDE [Concomitant]
     Indication: DEPRESSION
     Route: 065
     Dates: start: 20080128, end: 20091130
  6. LORAZEPAM [Concomitant]
     Indication: INSOMNIA
     Route: 065
     Dates: start: 20080128, end: 20091130
  7. DURAGESIC-100 [Concomitant]
     Indication: PAIN
     Route: 065
     Dates: start: 20091128, end: 20091130
  8. NULYTELY [Concomitant]
     Indication: CONSTIPATION
     Route: 065
     Dates: start: 20090918, end: 20091130
  9. LISINOPRIL [Concomitant]
     Indication: HYPERTENSION
     Route: 065
     Dates: start: 20080901, end: 20091130
  10. BISOPROLOL [Concomitant]
     Indication: HYPERTENSION
     Route: 065
     Dates: start: 20090901, end: 20091120
  11. BUMEX [Concomitant]
     Indication: RENAL FAILURE
     Route: 065
     Dates: start: 20090706, end: 20091130

REACTIONS (5)
  - ANAEMIA [None]
  - LYMPHOCYTOSIS [None]
  - MULTI-ORGAN FAILURE [None]
  - OVERDOSE [None]
  - THROMBOCYTOPENIA [None]
